FAERS Safety Report 4596009-8 (Version None)
Quarter: 2005Q1

REPORT INFORMATION
  Report Type: 
  Country: None (occurrence: None)
  Receive Date: 20050302
  Receipt Date: 20050222
  Transmission Date: 20050727
  Serious: Yes (Hospitalization)
  Sender: FDA-Public Use
  Company Number: US-JNJFOC-20050205905

PATIENT
  Sex: Female
  Weight: 77.11 kg

DRUGS (3)
  1. DURAGESIC-100 [Suspect]
     Route: 062
     Dates: start: 20040801
  2. VICODIN [Concomitant]
     Route: 049
     Dates: start: 20030101
  3. VICODIN [Concomitant]
     Indication: PAIN
     Dosage: 5 MG HYDROCODONE PLUS 500 MG ACETAMINOPHEN, THREE TIMES PER DAY AS NEEDED.
     Route: 049
     Dates: start: 20030101

REACTIONS (2)
  - FALL [None]
  - UPPER LIMB FRACTURE [None]
